FAERS Safety Report 4679551-0 (Version None)
Quarter: 2005Q2

REPORT INFORMATION
  Report Type: 
  Country: None (occurrence: None)
  Receive Date: 20050602
  Receipt Date: 20050204
  Transmission Date: 20051028
  Serious: Yes (Other)
  Sender: FDA-Public Use
  Company Number: PHEH2005US01661

PATIENT
  Age: 71 Year
  Sex: Male

DRUGS (10)
  1. ZOMETA [Suspect]
     Indication: MULTIPLE MYELOMA
     Dosage: 4 MG, QMO
     Dates: start: 20030101, end: 20040901
  2. MELPHALAN [Concomitant]
     Dates: start: 20020901, end: 20041201
  3. PREDNISONE TAB [Concomitant]
     Dates: start: 20020901, end: 20041201
  4. EPOGEN [Concomitant]
     Dosage: 4000 UNITS
     Dates: start: 20021101
  5. GLUCOPHAGE [Concomitant]
  6. TERAZOSIN HCL CAPSULES (NGX) [Concomitant]
  7. TORSEMIDE [Concomitant]
  8. LISINOPRIL TABLETS (NGX) [Concomitant]
  9. MULTIVITAMIN PREPARATIONS WITH OR W/O MINERAL [Concomitant]
  10. PHENERGAN [Concomitant]
     Indication: NAUSEA

REACTIONS (18)
  - AGEUSIA [None]
  - ALVEOLOPLASTY [None]
  - BONE DISORDER [None]
  - GINGIVITIS [None]
  - HUNGER [None]
  - HYPOAESTHESIA ORAL [None]
  - IMPAIRED HEALING [None]
  - NAUSEA [None]
  - ORAL DYSAESTHESIA [None]
  - OSTEONECROSIS [None]
  - PAIN [None]
  - PARAESTHESIA ORAL [None]
  - PRIMARY SEQUESTRUM [None]
  - RENAL FAILURE [None]
  - SEQUESTRECTOMY [None]
  - TOOTH EXTRACTION [None]
  - WOUND DEBRIDEMENT [None]
  - WOUND TREATMENT [None]
